FAERS Safety Report 12185189 (Version 4)
Quarter: 2017Q1

REPORT INFORMATION
  Report Type: Report from Study
  Country: US (occurrence: US)
  Receive Date: 20160316
  Receipt Date: 20170315
  Transmission Date: 20170428
  Serious: Yes (Hospitalization, Congenital Anomaly, Other)
  Sender: FDA-Public Use
  Company Number: US-TEVA-637769USA

PATIENT
  Age: 0 Year
  Sex: Female
  Weight: 7.54 kg

DRUGS (7)
  1. NUVIGIL [Suspect]
     Active Substance: ARMODAFINIL
     Indication: FATIGUE
     Dosage: 250 MILLIGRAM DAILY;
     Route: 064
     Dates: start: 2010, end: 20150720
  2. PRENATAL VITAMINS [Concomitant]
     Active Substance: VITAMINS
     Dates: start: 20150628
  3. OCEANS MOM/DHA VITAMIN [Concomitant]
     Dates: start: 20150628
  4. PRISTIQ EXTENDED-RELEASE [Concomitant]
     Active Substance: DESVENLAFAXINE SUCCINATE
     Indication: ANXIETY
     Dosage: 100 MILLIGRAM DAILY; AT NIGHT
     Route: 065
     Dates: start: 2010
  5. AMBIEN [Concomitant]
     Active Substance: ZOLPIDEM TARTRATE
     Indication: SLEEP DISORDER
     Dosage: 5 MILLIGRAM DAILY; AT NIGHT
     Route: 065
     Dates: start: 2010
  6. TECFIDERA [Concomitant]
     Active Substance: DIMETHYL FUMARATE
     Indication: MULTIPLE SCLEROSIS
     Dosage: 480 MILLIGRAM DAILY;
     Route: 065
     Dates: start: 201503, end: 20150628
  7. NUVARING [Concomitant]
     Active Substance: ETHINYL ESTRADIOL\ETONOGESTREL

REACTIONS (11)
  - Foetal distress syndrome [Unknown]
  - Neonatal respiratory distress syndrome [Unknown]
  - Gastrooesophageal reflux disease [Not Recovered/Not Resolved]
  - Foetal exposure during pregnancy [Unknown]
  - Patent ductus arteriosus [Unknown]
  - Developmental delay [Unknown]
  - Atrial septal defect [Unknown]
  - Foetal arrhythmia [Unknown]
  - Tachycardia foetal [Unknown]
  - Meconium aspiration syndrome [Unknown]
  - Benign congenital hypotonia [Unknown]

NARRATIVE: CASE EVENT DATE: 201602
